FAERS Safety Report 10079628 (Version 1)
Quarter: 2014Q2

REPORT INFORMATION
  Report Type: Spontaneous
  Country: US (occurrence: None)
  Receive Date: 20140414
  Receipt Date: 20140414
  Transmission Date: 20141212
  Serious: Yes (Hospitalization)
  Sender: FDA-Public Use
  Company Number: None

PATIENT
  Age: 41 Year
  Sex: Female
  Weight: 74.84 kg

DRUGS (1)
  1. COPAXONE [Suspect]
     Dosage: INJECTION 3 TIMES WEEKLY GIVEN INTO/UNDER THE SKIN
     Dates: start: 20140401, end: 20140409

REACTIONS (5)
  - Chills [None]
  - Vomiting [None]
  - Vision blurred [None]
  - Hypotension [None]
  - Heart rate abnormal [None]
